FAERS Safety Report 9230525 (Version 2)
Quarter: 2013Q2

REPORT INFORMATION
  Report Type: Spontaneous
  Country: JP (occurrence: JP)
  Receive Date: 20130415
  Receipt Date: 20130415
  Transmission Date: 20140414
  Serious: Yes (Death, Other)
  Sender: FDA-Public Use
  Company Number: JP-PFIZER INC-2013112218

PATIENT
  Age: 77 Year
  Sex: Female

DRUGS (2)
  1. SOLANAX [Suspect]
     Dosage: UNK
     Route: 048
     Dates: start: 201102, end: 201102
  2. MINOMYCIN [Suspect]
     Dosage: UNK
     Route: 042
     Dates: start: 201102, end: 201102

REACTIONS (3)
  - Respiratory failure [Fatal]
  - Drug-induced liver injury [Unknown]
  - Renal failure acute [Unknown]
